FAERS Safety Report 6317200-6 (Version None)
Quarter: 2009Q3

REPORT INFORMATION
  Report Type: 
  Country: None (occurrence: None)
  Receive Date: 20090820
  Receipt Date: 20090811
  Transmission Date: 20100115
  Serious: Yes (Hospitalization)
  Sender: FDA-Public Use
  Company Number: JP-AMGEN-US357298

PATIENT
  Sex: Male
  Weight: 53 kg

DRUGS (21)
  1. ENBREL [Suspect]
     Indication: RHEUMATOID ARTHRITIS
     Dosage: 25 MG X 2/WEEK (LYOPHYLIZED)
     Route: 058
     Dates: start: 20071116, end: 20080821
  2. ENBREL [Suspect]
     Dosage: 25 MG X 2/WEEK (SYRINGE-SOLUTION FOR INJ)
     Route: 058
     Dates: start: 20080822, end: 20090309
  3. BUCILLAMINE [Concomitant]
     Indication: RHEUMATOID ARTHRITIS
     Route: 048
     Dates: end: 20081205
  4. PREDNISOLONE [Concomitant]
     Indication: RHEUMATOID ARTHRITIS
     Route: 048
     Dates: end: 20090311
  5. PREDNISOLONE [Concomitant]
     Route: 048
     Dates: start: 20090311, end: 20090518
  6. PREDNISOLONE [Concomitant]
     Route: 048
     Dates: start: 20090318
  7. ASPARA-CA [Concomitant]
     Indication: OSTEOPOROSIS
     Route: 048
     Dates: end: 20090310
  8. HYPEN [Concomitant]
     Indication: RHEUMATOID ARTHRITIS
     Route: 048
     Dates: end: 20090310
  9. LEFLUNOMIDE [Concomitant]
     Dosage: UNKNOWN
     Dates: start: 20030101
  10. GASTER [Concomitant]
     Indication: PROPHYLAXIS
     Route: 048
  11. AMOBAN [Concomitant]
     Indication: INSOMNIA
     Route: 048
  12. AMOBAN [Concomitant]
     Route: 048
     Dates: start: 20090318
  13. ACTONEL [Concomitant]
     Indication: OSTEOPOROSIS
     Route: 048
     Dates: end: 20090310
  14. KLARICID [Concomitant]
     Indication: BRONCHITIS
     Route: 048
     Dates: end: 20090310
  15. PROGRAF [Concomitant]
     Indication: RHEUMATOID ARTHRITIS
     Route: 048
     Dates: start: 20081121
  16. PROGRAF [Concomitant]
     Route: 048
     Dates: start: 20090318
  17. ALESION [Concomitant]
     Indication: URTICARIA
     Route: 048
     Dates: start: 20081112, end: 20081119
  18. METHOTREXATE [Concomitant]
     Indication: RHEUMATOID ARTHRITIS
     Route: 048
     Dates: start: 20030110
  19. METHOTREXATE [Concomitant]
     Route: 048
     Dates: start: 20090318
  20. FOLIAMIN [Concomitant]
     Indication: PROPHYLAXIS
     Route: 048
     Dates: start: 20030110
  21. FOLIAMIN [Concomitant]
     Route: 048
     Dates: start: 20090318

REACTIONS (1)
  - ANAPHYLACTIC SHOCK [None]
